FAERS Safety Report 6501272-X (Version None)
Quarter: 2009Q4

REPORT INFORMATION
  Report Type: 
  Country: None (occurrence: None)
  Receive Date: 20091216
  Receipt Date: 20091209
  Transmission Date: 20100525
  Serious: Yes (Hospitalization)
  Sender: FDA-Public Use
  Company Number: DE-ABBOTT-09P-062-0609610-00

PATIENT
  Sex: Male
  Weight: 64 kg

DRUGS (4)
  1. KALETRA [Suspect]
     Indication: HIV INFECTION
     Dosage: 1 TABLET
     Route: 048
     Dates: start: 20090915
  2. KALETRA [Suspect]
     Indication: ACQUIRED IMMUNODEFICIENCY SYNDROME
  3. TVD [Concomitant]
     Indication: DRUG USE FOR UNKNOWN INDICATION
     Route: 048
  4. TRUVADA [Concomitant]
     Indication: HIV INFECTION
     Dosage: 1 TABLET
     Route: 048
     Dates: start: 20090915

REACTIONS (1)
  - ACQUIRED IMMUNODEFICIENCY SYNDROME [None]
